FAERS Safety Report 5873463-2 (Version None)
Quarter: 2008Q3

REPORT INFORMATION
  Report Type: 
  Country: None (occurrence: None)
  Receive Date: 20080908
  Receipt Date: 20080806
  Transmission Date: 20090109
  Serious: No
  Sender: FDA-Public Use
  Company Number: US-BAYER-200830717NA

PATIENT
  Sex: Female

DRUGS (2)
  1. MIRENA [Suspect]
     Indication: DRUG USE FOR UNKNOWN INDICATION
     Route: 015
  2. MOTRIN [Concomitant]
     Indication: MENOMETRORRHAGIA
     Route: 048

REACTIONS (3)
  - COMPLICATION OF DEVICE INSERTION [None]
  - MENOMETRORRHAGIA [None]
  - VAGINAL HAEMORRHAGE [None]
